FAERS Safety Report 6451161-4 (Version None)
Quarter: 2009Q4

REPORT INFORMATION
  Report Type: 
  Country: None (occurrence: None)
  Receive Date: 20091123
  Receipt Date: 20090427
  Transmission Date: 20100525
  Serious: Yes (Hospitalization)
  Sender: FDA-Public Use
  Company Number: US-AMGEN-QUU330750

PATIENT
  Sex: Female

DRUGS (6)
  1. ENBREL [Suspect]
     Indication: RHEUMATOID ARTHRITIS
     Route: 058
     Dates: start: 20020101, end: 20090119
  2. METHOTREXATE [Concomitant]
     Route: 048
  3. FOLIC ACID [Concomitant]
  4. MULTIPLE VITAMINS [Concomitant]
  5. CALCIUM WITH VITAMIN D [Concomitant]
  6. VITAMIN D [Concomitant]

REACTIONS (13)
  - BACK PAIN [None]
  - BURSITIS [None]
  - CARPAL TUNNEL SYNDROME [None]
  - CATARACT [None]
  - MUSCULOSKELETAL STIFFNESS [None]
  - MYOFASCIAL PAIN SYNDROME [None]
  - OSTEOARTHRITIS [None]
  - OSTEOPOROSIS [None]
  - RAYNAUD'S PHENOMENON [None]
  - RHEUMATOID ARTHRITIS [None]
  - STAPHYLOCOCCAL INFECTION [None]
  - THERAPEUTIC RESPONSE DECREASED [None]
  - VITAMIN D DEFICIENCY [None]
